FAERS Safety Report 22265292 (Version 1)
Quarter: 2023Q2

REPORT INFORMATION
  Report Type: Spontaneous
  Country: US (occurrence: None)
  Receive Date: 20230426
  Receipt Date: 20230426
  Transmission Date: 20230721
  Serious: No
  Sender: FDA-Public Use
  Company Number: None

PATIENT
  Age: 82 Year
  Sex: Female
  Weight: 68.49 kg

DRUGS (31)
  1. LENALIDOMIDE [Suspect]
     Active Substance: LENALIDOMIDE
     Indication: Myelodysplastic syndrome
     Dosage: FREQUENCY : EVERY OTHER DAY;?
     Route: 048
  2. Amitriptyline HCI [Concomitant]
  3. ASPIRIN [Concomitant]
     Active Substance: ASPIRIN
  4. ATORVASTATIN CALCIUM [Concomitant]
  5. VITAMIN B12 [Concomitant]
     Active Substance: CYANOCOBALAMIN
  6. CELECOXIB [Concomitant]
     Active Substance: CELECOXIB
  7. Claritin [Concomitant]
  8. COMBIVENT RESPIMAT [Concomitant]
  9. Cyclobenzapine HCI [Concomitant]
  10. FOSAMAX [Concomitant]
     Active Substance: ALENDRONATE SODIUM
  11. GABAPENTIN [Concomitant]
  12. IRON [Concomitant]
  13. Klor-Con 10 [Concomitant]
  14. levofloxaxin [Concomitant]
  15. LEVOTHYROXINE SODIUM [Concomitant]
  16. LISINOPRIL [Concomitant]
  17. MAGNESIUM GLUCONATE [Concomitant]
  18. MAGNESIUM OXIDE [Concomitant]
     Active Substance: MAGNESIUM OXIDE
  19. MELOXICAM [Concomitant]
  20. Micro Guard [Concomitant]
  21. Pantroprazole Sodium [Concomitant]
  22. Percocet [Concomitant]
  23. POTASSIUM CHLORIDE [Concomitant]
     Active Substance: POTASSIUM CHLORIDE
  24. POTASSIUM CITRATE [Concomitant]
     Active Substance: POTASSIUM CITRATE
  25. Sertraline HCI [Concomitant]
  26. SYNTHROID [Concomitant]
  27. TEMAZEPAM [Concomitant]
  28. TRAMADOL HYDROCHLORIDE [Concomitant]
     Active Substance: TRAMADOL HYDROCHLORIDE
  29. Vitamin C [Concomitant]
  30. Vitamin D [Concomitant]
  31. WARFARIN SODIUM [Concomitant]

REACTIONS (2)
  - Urinary tract infection [None]
  - Electrolyte imbalance [None]
